FAERS Safety Report 4436255-7 (Version None)
Quarter: 2004Q3

REPORT INFORMATION
  Report Type: 
  Country: None (occurrence: None)
  Receive Date: 20040830
  Receipt Date: 20040614
  Transmission Date: 20050211
  Serious: Yes (Disabling, Other)
  Sender: FDA-Public Use
  Company Number: US-BRISTOL-MYERS SQUIBB COMPANY-12614517

PATIENT
  Age: 78 Year
  Sex: Male
  Weight: 77 kg

DRUGS (6)
  1. ERBITUX [Suspect]
     Indication: COLON CANCER METASTATIC
     Route: 042
     Dates: start: 20040603, end: 20040603
  2. ANZEMET [Concomitant]
     Indication: PREMEDICATION
     Route: 042
     Dates: start: 20040603, end: 20040603
  3. BENADRYL [Concomitant]
     Indication: PREMEDICATION
     Route: 042
     Dates: start: 20040603, end: 20040603
  4. CAMPTOSAR [Concomitant]
     Dates: start: 20040526, end: 20040526
  5. ECOTRIN [Concomitant]
  6. ENALAPRIL [Concomitant]

REACTIONS (3)
  - EYELID OEDEMA [None]
  - PRURITUS [None]
  - RASH ERYTHEMATOUS [None]
